FAERS Safety Report 9164923 (Version 2)
Quarter: 2013Q1

REPORT INFORMATION
  Report Type: Spontaneous
  Country: GB (occurrence: None)
  Receive Date: 20130222
  Receipt Date: 20130226
  Transmission Date: 20140127
  Serious: Yes (Other)
  Sender: FDA-Public Use
  Company Number: AUR-APL-2013-01498

PATIENT
  Age: 20 Year
  Sex: Male
  Weight: 68 kg

DRUGS (3)
  1. CITALOPRAM (CITALOPRAM) [Suspect]
     Indication: DEPRESSION
     Dosage: 20-40, ORAL
     Route: 048
     Dates: start: 20111105, end: 20120802
  2. TRAZODONE (TRAZODONE) [Suspect]
     Indication: PRODUCT USED FOR UNKNOWN INDICATION
     Route: 048
     Dates: start: 20111227, end: 20120313
  3. VENLAFAXINE (VENLAFAXINE) [Concomitant]

REACTIONS (7)
  - Psychotic disorder [None]
  - Insomnia [None]
  - Hallucination, visual [None]
  - Contraindication to medical treatment [None]
  - Drug prescribing error [None]
  - Logorrhoea [None]
  - Abnormal behaviour [None]
